FAERS Safety Report 23059170 (Version 1)
Quarter: 2023Q4

REPORT INFORMATION
  Report Type: Spontaneous
  Country: NL (occurrence: NL)
  Receive Date: 20231012
  Receipt Date: 20231012
  Transmission Date: 20240110
  Serious: Yes (Other)
  Sender: FDA-Public Use
  Company Number: NL-Shilpa Medicare Limited-SML-NL-2023-01359

PATIENT
  Age: 5 Year

DRUGS (6)
  1. DOXORUBICIN [Suspect]
     Active Substance: DOXORUBICIN
     Indication: Nephroblastoma
     Dosage: UNK
     Route: 042
  2. IRINOTECAN [Suspect]
     Active Substance: IRINOTECAN
     Indication: Nephroblastoma
     Dosage: UNK
     Route: 042
  3. DACTINOMYCIN [Suspect]
     Active Substance: DACTINOMYCIN
     Indication: Nephroblastoma
     Dosage: UNK
     Route: 042
  4. VINCRISTINE [Suspect]
     Active Substance: VINCRISTINE
     Indication: Nephroblastoma
     Dosage: UNK
     Route: 042
  5. ETOPOSIDE [Suspect]
     Active Substance: ETOPOSIDE
     Indication: Nephroblastoma
     Dosage: UNK
     Route: 042
  6. CARBOPLATIN [Suspect]
     Active Substance: CARBOPLATIN
     Indication: Nephroblastoma
     Dosage: UNK
     Route: 042

REACTIONS (6)
  - Polyneuropathy [Unknown]
  - Neurotoxicity [Unknown]
  - Constipation [Unknown]
  - Peroneal nerve palsy [Unknown]
  - Eyelid ptosis [Unknown]
  - Facial paresis [Unknown]
